FAERS Safety Report 22343822 (Version 1)
Quarter: 2023Q2

REPORT INFORMATION
  Report Type: Spontaneous
  Country: AT (occurrence: AT)
  Receive Date: 20230519
  Receipt Date: 20230519
  Transmission Date: 20230722
  Serious: Yes (Hospitalization, Other)
  Sender: FDA-Public Use
  Company Number: AT-Accord-358511

PATIENT
  Age: 35 Year
  Sex: Female
  Weight: 80 kg

DRUGS (2)
  1. SERTRALINE [Suspect]
     Active Substance: SERTRALINE HYDROCHLORIDE
     Indication: Depression
  2. DIMENHYDRINATE [Suspect]
     Active Substance: DIMENHYDRINATE
     Indication: Vertigo
     Dosage: SECOND INFUSION

REACTIONS (4)
  - Urinary retention [Recovered/Resolved]
  - Hyperlipidaemia [Unknown]
  - Hypoprolactinaemia [Unknown]
  - Hypoparathyroidism [Unknown]
